FAERS Safety Report 21878792 (Version 2)
Quarter: 2023Q2

REPORT INFORMATION
  Report Type: Spontaneous
  Country: US (occurrence: US)
  Receive Date: 20230118
  Receipt Date: 20230410
  Transmission Date: 20230722
  Serious: Yes (Other)
  Sender: FDA-Public Use
  Company Number: US-PFIZER INC-202300018824

PATIENT
  Age: 65 Year
  Sex: Female
  Weight: 90.72 kg

DRUGS (4)
  1. XELJANZ XR [Suspect]
     Active Substance: TOFACITINIB CITRATE
     Indication: Rheumatoid arthritis
     Dosage: 11 MG, 1X/DAY
     Dates: start: 2013
  2. XELJANZ XR [Suspect]
     Active Substance: TOFACITINIB CITRATE
     Dosage: 11 MG, DAILY(XELJANZ 11MG QD (2014))
     Route: 048
     Dates: start: 2014
  3. PLAQUENIL [Concomitant]
     Active Substance: HYDROXYCHLOROQUINE SULFATE
     Indication: Rheumatoid arthritis
     Dosage: 200 MG, 1X/DAY
     Dates: start: 2020
  4. PLAQUENIL [Concomitant]
     Active Substance: HYDROXYCHLOROQUINE SULFATE
     Dosage: 200 MG, 2X/DAY
     Route: 048
     Dates: start: 2008

REACTIONS (9)
  - Cataract [Recovering/Resolving]
  - Retinal operation [Recovering/Resolving]
  - Retinal disorder [Unknown]
  - Mixed connective tissue disease [Unknown]
  - Vitreous disorder [Unknown]
  - Visual acuity reduced [Unknown]
  - Dry eye [Unknown]
  - Vision blurred [Unknown]
  - Eye inflammation [Unknown]

NARRATIVE: CASE EVENT DATE: 20220701
